FAERS Safety Report 8558937-8 (Version None)
Quarter: 2012Q3

REPORT INFORMATION
  Report Type: 
  Country: None (occurrence: None)
  Receive Date: 20120802
  Receipt Date: 20120723
  Transmission Date: 20120928
  Serious: Yes (Hospitalization)
  Sender: FDA-Public Use
  Company Number: JP-BRISTOL-MYERS SQUIBB COMPANY-16742785

PATIENT
  Age: 65 Year
  Sex: Male
  Weight: 52 kg

DRUGS (15)
  1. ANPLAG [Concomitant]
     Indication: PRINZMETAL ANGINA
     Route: 048
  2. LANSOPRAZOLE [Concomitant]
     Indication: HAEMORRHAGE
     Dosage: TAB
     Route: 048
     Dates: start: 20120529
  3. ASPIRIN [Concomitant]
     Indication: PRINZMETAL ANGINA
     Route: 048
  4. CHLORPROMAZINE HCL [Concomitant]
     Indication: HICCUPS
     Dosage: TAB
     Route: 048
     Dates: start: 20120229
  5. SELBEX [Concomitant]
     Indication: PROPHYLAXIS
     Dosage: CAP
     Route: 048
  6. S-1 [Suspect]
     Indication: GASTRIC CANCER
     Route: 048
     Dates: start: 20120221, end: 20120724
  7. OXYCODONE HYDROCHLORIDE [Concomitant]
     Indication: PAIN
     Route: 048
  8. CISPLATIN [Suspect]
     Indication: GASTRIC CANCER
     Route: 042
     Dates: start: 20120221, end: 20120724
  9. SIGMART [Concomitant]
     Indication: PRINZMETAL ANGINA
     Dosage: TAB
     Route: 048
  10. DEXALTIN [Concomitant]
     Indication: STOMATITIS
     Dates: start: 20120523
  11. LOPERAMIDE [Concomitant]
     Indication: DIARRHOEA
     Dosage: TAB
     Route: 048
     Dates: start: 20120529
  12. LIPITOR [Concomitant]
     Indication: PERIPHERAL ARTERIAL OCCLUSIVE DISEASE
     Route: 048
  13. HACHIAZULE [Concomitant]
     Indication: STOMATITIS
     Dates: start: 20120424
  14. OXYCONTIN [Concomitant]
     Indication: PAIN
     Dosage: TAB
     Route: 048
     Dates: start: 20120621
  15. NIFEDIPINE [Concomitant]
     Indication: HYPERTENSION
     Route: 048

REACTIONS (5)
  - FEBRILE NEUTROPENIA [None]
  - HAEMOGLOBIN DECREASED [None]
  - FATIGUE [None]
  - ABDOMINAL PAIN [None]
  - DECREASED APPETITE [None]
